FAERS Safety Report 5187932-4 (Version None)
Quarter: 2006Q4

REPORT INFORMATION
  Report Type: 
  Country: None (occurrence: None)
  Receive Date: 20061221
  Receipt Date: 20060920
  Transmission Date: 20070319
  Serious: Yes (Hospitalization)
  Sender: FDA-Public Use
  Company Number: US-AVENTIS-200617907US

PATIENT
  Age: 8 Month
  Sex: Male

DRUGS (3)
  1. LOVENOX [Suspect]
     Indication: CATHETER RELATED COMPLICATION
     Dates: start: 20060901
  2. LOVENOX [Suspect]
     Indication: THROMBOSIS
     Dates: start: 20060901
  3. LOVENOX [Suspect]
     Dates: start: 20060920, end: 20060920

REACTIONS (4)
  - ACCIDENTAL OVERDOSE [None]
  - INCISION SITE COMPLICATION [None]
  - PROCEDURAL COMPLICATION [None]
  - WOUND SECRETION [None]
